FAERS Safety Report 7233374-7 (Version None)
Quarter: 2011Q1

REPORT INFORMATION
  Report Type: 
  Country: None (occurrence: None)
  Receive Date: 20110119
  Receipt Date: 20110107
  Transmission Date: 20110831
  Serious: Yes (Hospitalization)
  Sender: FDA-Public Use
  Company Number: US-BRISTOL-MYERS SQUIBB COMPANY-15476757

PATIENT
  Age: 38 Year
  Sex: Male
  Weight: 147 kg

DRUGS (2)
  1. ONGLYZA [Suspect]
     Indication: DIABETES MELLITUS
  2. DIOVAN [Suspect]
     Indication: HYPERTENSION

REACTIONS (1)
  - PANCREATITIS [None]
